FAERS Safety Report 13740048 (Version 1)
Quarter: 2017Q3

REPORT INFORMATION
  Report Type: Spontaneous
  Country: US (occurrence: US)
  Receive Date: 20170710
  Receipt Date: 20170710
  Transmission Date: 20171127
  Serious: Yes (Hospitalization)
  Sender: FDA-Public Use
  Company Number: None

PATIENT
  Age: 65 Year
  Sex: Male

DRUGS (5)
  1. MESALAMINE. [Concomitant]
     Active Substance: MESALAMINE
  2. CHOLESTYRAMINE. [Concomitant]
     Active Substance: CHOLESTYRAMINE
  3. LEVOTHYROXINE. [Concomitant]
     Active Substance: LEVOTHYROXINE
  4. LOMOTIL [Concomitant]
     Active Substance: ATROPINE SULFATE\DIPHENOXYLATE HYDROCHLORIDE
  5. OCTREOTIDE 50 MCG [Suspect]
     Active Substance: OCTREOTIDE ACETATE
     Indication: COLITIS ULCERATIVE
     Dosage: ?          OTHER DOSE:UGM;?
     Route: 058
     Dates: start: 20170404

REACTIONS (1)
  - Sepsis [None]

NARRATIVE: CASE EVENT DATE: 20170704
